FAERS Safety Report 13372244 (Version 1)
Quarter: 2017Q1

REPORT INFORMATION
  Report Type: Spontaneous
  Country: US (occurrence: US)
  Receive Date: 20170324
  Receipt Date: 20170324
  Transmission Date: 20170429
  Serious: No
  Sender: FDA-Public Use
  Company Number: None

PATIENT
  Age: 32 Year
  Sex: Female
  Weight: 68.4 kg

DRUGS (6)
  1. AZITHROMYCIN TABLETS USP [Suspect]
     Active Substance: AZITHROMYCIN ANHYDROUS
     Indication: BRONCHITIS
     Dosage: ?          QUANTITY:6 TABLET(S);OTHER FREQUENCY:2/1ST DAY;?
     Route: 048
     Dates: start: 20170320, end: 20170324
  2. VITAMIN B COMPLEX [Concomitant]
     Active Substance: CYANOCOBALAMIN\DEXPANTHENOL\NIACINAMIDE\PYRIDOXINE HYDROCHLORIDE\RIBOFLAVIN 5^-PHOSPHATE SODIUM\THIAMINE HYDROCHLORIDE\VITAMIN B COMPLEX
  3. PROBIOTICS [Concomitant]
     Active Substance: PROBIOTICS NOS
  4. VITAMIN C [Concomitant]
     Active Substance: ASCORBIC ACID
  5. AZITHROMYCIN TABLETS USP [Suspect]
     Active Substance: AZITHROMYCIN ANHYDROUS
     Indication: SINUSITIS
     Dosage: ?          QUANTITY:6 TABLET(S);OTHER FREQUENCY:2/1ST DAY;?
     Route: 048
     Dates: start: 20170320, end: 20170324
  6. MULTIVITAMIN (WITHOUT IRON) [Concomitant]

REACTIONS (3)
  - Abdominal pain [None]
  - Gastrointestinal sounds abnormal [None]
  - Flatulence [None]

NARRATIVE: CASE EVENT DATE: 20170324
